FAERS Safety Report 6683895-0 (Version None)
Quarter: 2010Q2

REPORT INFORMATION
  Report Type: 
  Country: None (occurrence: None)
  Receive Date: 20100416
  Receipt Date: 20100406
  Transmission Date: 20101027
  Serious: Yes (Other)
  Sender: FDA-Public Use
  Company Number: US-JNJFOC-20100402390

PATIENT
  Sex: Female
  Weight: 81.65 kg

DRUGS (14)
  1. FENTANYL-100 [Suspect]
     Indication: ABDOMINAL PAIN UPPER
     Route: 062
  2. FENTANYL-100 [Suspect]
     Route: 062
  3. FENTANYL-100 [Suspect]
     Indication: BACK PAIN
     Route: 062
  4. FENTANYL-100 [Suspect]
     Route: 062
  5. DURAGESIC-100 [Suspect]
     Indication: ABDOMINAL PAIN UPPER
     Route: 062
  6. DURAGESIC-100 [Suspect]
     Indication: BACK PAIN
     Route: 062
  7. DURAGESIC-100 [Suspect]
     Route: 062
  8. DURAGESIC-100 [Suspect]
     Route: 062
  9. DURAGESIC-100 [Suspect]
     Route: 062
  10. DURAGESIC-100 [Suspect]
     Route: 062
  11. LACTULOSE [Concomitant]
     Indication: CONSTIPATION
     Dosage: 10 GM/15 ML
     Route: 048
  12. OXYCODONE [Concomitant]
     Indication: BLADDER PAIN
     Route: 048
  13. MIDRIN [Concomitant]
     Indication: MIGRAINE
     Route: 048
  14. MAXOL [Concomitant]
     Indication: MIGRAINE
     Route: 048

REACTIONS (8)
  - FEELING COLD [None]
  - HAEMOGLOBIN DECREASED [None]
  - HYPERHIDROSIS [None]
  - IRON DEFICIENCY [None]
  - PAIN [None]
  - SOMNOLENCE [None]
  - TREATMENT NONCOMPLIANCE [None]
  - WRONG TECHNIQUE IN DRUG USAGE PROCESS [None]
